FAERS Safety Report 9697312 (Version 1)
Quarter: 2013Q4

REPORT INFORMATION
  Report Type: Spontaneous
  Country: US (occurrence: None)
  Receive Date: 20131119
  Receipt Date: 20131119
  Transmission Date: 20140711
  Serious: Yes (Hospitalization)
  Sender: FDA-Public Use
  Company Number: None

PATIENT
  Age: 30 Year
  Sex: Female

DRUGS (2)
  1. LAMOTRIGINE [Suspect]
     Route: 048
     Dates: start: 20131005
  2. CARBAMAZEPINE [Suspect]
     Dosage: 200 MG BID PO
     Dates: start: 20131009

REACTIONS (1)
  - Drug reaction with eosinophilia and systemic symptoms [None]
